FAERS Safety Report 23869412 (Version 1)
Quarter: 2024Q2

REPORT INFORMATION
  Report Type: Spontaneous
  Country: CH (occurrence: CH)
  Receive Date: 20240517
  Receipt Date: 20240517
  Transmission Date: 20240716
  Serious: Yes (Hospitalization, Other)
  Sender: FDA-Public Use
  Company Number: None

PATIENT
  Age: 38 Year
  Sex: Male
  Weight: 80.6 kg

DRUGS (12)
  1. XANAX [Suspect]
     Active Substance: ALPRAZOLAM
     Indication: Anxiety
     Dosage: 0.5 MILLIGRAM, AS NECESSARY
     Route: 065
     Dates: start: 20240326
  2. METHADONE [Suspect]
     Active Substance: METHADONE HYDROCHLORIDE
     Indication: Product used for unknown indication
     Dosage: UNK
     Route: 065
  3. ACETAMINOPHEN\CODEINE PHOSPHATE [Suspect]
     Active Substance: ACETAMINOPHEN\CODEINE PHOSPHATE
     Indication: Pain
     Dosage: UNK (500/30 MILLIGRAM, AS NECESSARY)
     Route: 065
     Dates: start: 20240305
  4. TRAMADOL [Suspect]
     Active Substance: TRAMADOL\TRAMADOL HYDROCHLORIDE
     Indication: Pain
     Dosage: 1 DOSAGE FORM, QD
     Route: 065
     Dates: start: 20240314
  5. CLOTHIAPINE [Suspect]
     Active Substance: CLOTHIAPINE
     Indication: Sleep disorder
     Dosage: 40 MILLIGRAM, QD
     Route: 065
     Dates: start: 20240112
  6. RIVOTRIL [Suspect]
     Active Substance: CLONAZEPAM
     Indication: Product used for unknown indication
     Dosage: 30 DROP, BID (1/12 MILLILITRE12 HOUR)
     Route: 065
  7. TRAZODONE HYDROCHLORIDE [Suspect]
     Active Substance: TRAZODONE HYDROCHLORIDE
     Indication: Product used for unknown indication
     Dosage: 50 MILLIGRAM, QD
     Route: 065
     Dates: start: 20240111
  8. TRAMADOL [Suspect]
     Active Substance: TRAMADOL\TRAMADOL HYDROCHLORIDE
     Indication: Pain
     Dosage: 50 MILLIGRAM, AS NECESSARY
     Route: 065
     Dates: start: 20240326, end: 20240329
  9. SERTRALINE HYDROCHLORIDE [Suspect]
     Active Substance: SERTRALINE HYDROCHLORIDE
     Indication: Product used for unknown indication
     Dosage: 1.5 DOSAGE FORM, QD
     Route: 065
     Dates: start: 20240119
  10. QUETIAPINE [Suspect]
     Active Substance: QUETIAPINE
     Indication: Product used for unknown indication
     Dosage: 1 DOSAGE FORM, AS NECESSARY
     Route: 065
     Dates: start: 20240119
  11. THIAMINE HYDROCHLORIDE [Concomitant]
     Active Substance: THIAMINE HYDROCHLORIDE
     Dosage: UNK
     Route: 065
  12. VITAMINS [Concomitant]
     Active Substance: VITAMINS
     Dosage: UNK
     Route: 065

REACTIONS (1)
  - Disturbance in attention [Recovered/Resolved]

NARRATIVE: CASE EVENT DATE: 20240327
